FAERS Safety Report 7899071-X (Version None)
Quarter: 2011Q4

REPORT INFORMATION
  Report Type: 
  Country: None (occurrence: None)
  Receive Date: 20111107
  Receipt Date: 20111028
  Transmission Date: 20120403
  Serious: Yes (Other)
  Sender: FDA-Public Use
  Company Number: FR-MERCK-1111FRA00001

PATIENT
  Sex: Female

DRUGS (1)
  1. PROSCAR [Suspect]
     Route: 065
     Dates: start: 20070101

REACTIONS (2)
  - EXPOSURE VIA SEMEN [None]
  - ABORTION SPONTANEOUS [None]
